FAERS Safety Report 4522564-X (Version None)
Quarter: 2004Q4

REPORT INFORMATION
  Report Type: 
  Country: None (occurrence: None)
  Receive Date: 20041207
  Receipt Date: 20041124
  Transmission Date: 20050328
  Serious: Yes (Death)
  Sender: FDA-Public Use
  Company Number: 2004100524

PATIENT
  Age: 99 Year
  Sex: Female

DRUGS (15)
  1. CELEBREX [Suspect]
     Indication: ILL-DEFINED DISORDER
     Dosage: 200 - 400MG (2 IN 1 D), ORAL
     Route: 048
     Dates: start: 20020101, end: 20041114
  2. ASPIRIN [Suspect]
     Indication: PAIN
     Dosage: 75 MG (75 MG, 1 IN 1 D), ORAL
     Route: 048
     Dates: start: 20000101, end: 20041114
  3. MIRTAZAPINE [Suspect]
     Indication: DEPRESSION
     Dosage: 30 MG (30 MG, 1 IN 1 D), ORAL
     Route: 048
     Dates: start: 20041022, end: 20041114
  4. ACETAMINOPHEN [Concomitant]
  5. ISOSORBIDE MONONITRATE [Concomitant]
  6. NULYTELY (MACROGOL, POTASSIUM CHLORIDE, SODIUM BICARBONATE, SODIUM CHL [Concomitant]
  7. SULPIRIDE (SULPIRIDE) [Concomitant]
  8. CODEINE PHOSPHATE (CODEINE PHOSPHATE) [Concomitant]
  9. DIDRONEL PMO ^NORWICH EATON^ (CALCIUM CARBONATE, ETIDRONATE DISODIUM) [Concomitant]
  10. NITROGLYCERIN [Concomitant]
  11. LACTULOSE [Concomitant]
  12. NEFOPAM HYDROCHLORIDE (NEFOPAM HYDROCHLORIDE) [Concomitant]
  13. SENNA (SENNA) [Concomitant]
  14. TRANSVASIN (BENZOCAINE, ETHYL NICOTINATE, HEXYL NICOTINATE, THURYFYL S [Concomitant]
  15. DOMPERIDONE (DOMPERIDONE) [Concomitant]

REACTIONS (5)
  - DEPRESSION [None]
  - HAEMATEMESIS [None]
  - HAEMOGLOBIN DECREASED [None]
  - PLATELET COUNT INCREASED [None]
  - WHITE BLOOD CELL COUNT INCREASED [None]
